FAERS Safety Report 8131690-8 (Version None)
Quarter: 2012Q1

REPORT INFORMATION
  Report Type: 
  Country: None (occurrence: None)
  Receive Date: 20120207
  Receipt Date: 20120125
  Transmission Date: 20120608
  Serious: Yes (Hospitalization)
  Sender: FDA-Public Use
  Company Number: 1178241

PATIENT
  Age: 65 Year
  Sex: Female

DRUGS (5)
  1. PREDNISONE [Suspect]
     Indication: RHEUMATOID ARTHRITIS
     Dosage: 10 MG MILLIGRAM(S)
  2. LEFLUNOMIDE [Suspect]
     Indication: RHEUMATOID ARTHRITIS
     Dosage: 20 MG MILLIGRAM(S)
  3. METHOTREXATE [Suspect]
     Indication: RHEUMATOID ARTHRITIS
     Dosage: 15 MG WEEKLY
  4. HYDROXYCHOLOQUINE [Suspect]
     Indication: RHEUMATOID ARTHRITIS
     Dosage: 200 MG TWICE DAILY
  5. ETANERCEPT [Suspect]
     Indication: RHEUMATOID ARTHRITIS
     Dosage: 50 MG WEEKLY, SUBCUTANEOUS
     Route: 058

REACTIONS (5)
  - JOINT RANGE OF MOTION DECREASED [None]
  - CANDIDIASIS [None]
  - DEVICE RELATED INFECTION [None]
  - NIGHT SWEATS [None]
  - FATIGUE [None]
